FAERS Safety Report 6808689-4 (Version None)
Quarter: 2010Q2

REPORT INFORMATION
  Report Type: 
  Country: None (occurrence: None)
  Receive Date: 20100629
  Receipt Date: 20090819
  Transmission Date: 20101027
  Serious: No
  Sender: FDA-Public Use
  Company Number: US-PFIZER INC-2009257868

PATIENT

DRUGS (1)
  1. ZYVOX [Suspect]
     Dates: start: 20090801

REACTIONS (2)
  - GASTRITIS [None]
  - NAUSEA [None]
